FAERS Safety Report 5102913-4 (Version None)
Quarter: 2006Q3

REPORT INFORMATION
  Report Type: 
  Country: None (occurrence: None)
  Receive Date: 20060908
  Receipt Date: 20060824
  Transmission Date: 20061208
  Serious: Yes (Hospitalization)
  Sender: FDA-Public Use
  Company Number: 228907

PATIENT
  Age: 65 Year
  Sex: Male

DRUGS (7)
  1. RITUXAN [Suspect]
     Indication: DIFFUSE LARGE B-CELL LYMPHOMA
     Dosage: 375
     Dates: start: 20060210, end: 20060815
  2. SENOKOT [Concomitant]
  3. ALLEGRA [Concomitant]
  4. ATIVAN [Concomitant]
  5. (CHLORPHENIRAMINE POLISTIREX, HYDROCODONE POLISTIREX) [Concomitant]
  6. CENTRUM (MINERALS NOS, MULTIVITAMINS NOS) [Concomitant]
  7. ARANESP [Concomitant]

REACTIONS (4)
  - ALOPECIA [None]
  - BODY TEMPERATURE INCREASED [None]
  - INTERNATIONAL NORMALISED RATIO DECREASED [None]
  - PULMONARY EMBOLISM [None]
